FAERS Safety Report 8904288 (Version 1)
Quarter: 2012Q4

REPORT INFORMATION
  Report Type: 
  Country: CA (occurrence: CA)
  Receive Date: 20121113
  Receipt Date: 20121113
  Transmission Date: 20130627
  Serious: Yes (Hospitalization)
  Sender: FDA-Public Use
  Company Number: PHHY2012CA060799

PATIENT
  Age: 28 Year
  Sex: Female

DRUGS (2)
  1. ILARIS [Suspect]
     Indication: MUCKLE-WELLS SYNDROME
     Dosage: 150 mg, every 2 months
  2. PREDNISONE [Concomitant]
     Dosage: 15 mg, QD

REACTIONS (3)
  - Loss of consciousness [Unknown]
  - Muckle-Wells syndrome [Unknown]
  - Drug effect decreased [Unknown]
